FAERS Safety Report 7098713-9 (Version None)
Quarter: 2010Q4

REPORT INFORMATION
  Report Type: 
  Country: None (occurrence: None)
  Receive Date: 20101112
  Receipt Date: 20080401
  Transmission Date: 20110411
  Serious: No
  Sender: FDA-Public Use
  Company Number: US-KINGPHARMUSA00001-K200800394

PATIENT
  Age: 20 Year
  Sex: Male

DRUGS (3)
  1. SKELAXIN [Suspect]
     Indication: BACK PAIN
     Dosage: 800 MG, TID
     Route: 048
     Dates: start: 20080331, end: 20080331
  2. TOPAMAX [Concomitant]
     Indication: HEADACHE
  3. KLONOPIN [Concomitant]
     Indication: BACK PAIN

REACTIONS (1)
  - ABDOMINAL DISCOMFORT [None]
